FAERS Safety Report 9095705 (Version 1)
Quarter: 2013Q1

REPORT INFORMATION
  Report Type: Spontaneous
  Country: US (occurrence: None)
  Receive Date: 20130124
  Receipt Date: 20130124
  Transmission Date: 20140127
  Serious: Yes (Other)
  Sender: FDA-Public Use
  Company Number: DSA_61969_2013

PATIENT
  Sex: 0

DRUGS (1)
  1. FLUOROURACIL (FLUOROURACIL) [Suspect]
     Indication: METASTATIC GASTRIC CANCER

REACTIONS (2)
  - Stress cardiomyopathy [None]
  - Cardiac failure [None]
